FAERS Safety Report 9579275 (Version 1)
Quarter: 2013Q4

REPORT INFORMATION
  Report Type: Spontaneous
  Country: US (occurrence: US)
  Receive Date: 20131001
  Receipt Date: 20131001
  Transmission Date: 20140711
  Serious: No
  Sender: FDA-Public Use
  Company Number: US-AMGEN-USASP2013017325

PATIENT
  Age: 55 Year
  Sex: Male
  Weight: 88.44 kg

DRUGS (5)
  1. ENBREL [Suspect]
     Indication: PRODUCT USED FOR UNKNOWN INDICATION
     Dosage: 50 MG, ONCE A WEEK
     Route: 058
  2. CLINORIL [Concomitant]
     Dosage: 200 MG, UNK
  3. NEURONTIN [Concomitant]
     Dosage: 100 MG, UNK
  4. IBU [Concomitant]
     Dosage: 200 MG, UNK
  5. VITAMIN D                          /00107901/ [Concomitant]
     Dosage: 400 UNIT, UNK

REACTIONS (1)
  - Drug ineffective [Unknown]
